FAERS Safety Report 11123636 (Version 1)
Quarter: 2015Q2

REPORT INFORMATION
  Report Type: Spontaneous
  Country: US (occurrence: US)
  Receive Date: 20150519
  Receipt Date: 20150519
  Transmission Date: 20150821
  Serious: Yes (Other)
  Sender: FDA-Public Use
  Company Number: US-BAYER-2015-230361

PATIENT
  Sex: Female

DRUGS (3)
  1. AVOBENZONE+HOMOSALATE+OCTINOXATE+OCTISALATE+OXYBENZONE [Suspect]
     Active Substance: AVOBENZONE\HOMOSALATE\OCTINOXATE\OCTISALATE\OXYBENZONE
     Indication: PRODUCT USED FOR UNKNOWN INDICATION
     Route: 061
  2. AVOBENZONE+HOMOSALATE+OCTISALATE+OCTOCRILENE [Suspect]
     Active Substance: AVOBENZONE\HOMOSALATE\OCTISALATE\OCTOCRYLENE
     Indication: PRODUCT USED FOR UNKNOWN INDICATION
     Route: 061
  3. AVOBENZONE+HOMOSALATE+OCTISALATE+OCTOCRILENE [Suspect]
     Active Substance: AVOBENZONE\HOMOSALATE\OCTISALATE\OCTOCRYLENE
     Indication: PRODUCT USED FOR UNKNOWN INDICATION
     Route: 061

REACTIONS (3)
  - Skin cancer [Not Recovered/Not Resolved]
  - Product use issue [Unknown]
  - Product expiration date issue [Unknown]
